FAERS Safety Report 4634360-3 (Version None)
Quarter: 2005Q2

REPORT INFORMATION
  Report Type: 
  Country: None (occurrence: None)
  Receive Date: 20050411
  Receipt Date: 20050329
  Transmission Date: 20051028
  Serious: Yes (Other)
  Sender: FDA-Public Use
  Company Number: 2005051798

PATIENT
  Age: 40 Year
  Sex: Male

DRUGS (5)
  1. CLINDAMYCIN HYDROCHLORIDE [Suspect]
     Indication: CEREBRAL TOXOPLASMOSIS
  2. PYRIMETHAMINE TAB [Suspect]
     Indication: CEREBRAL TOXOPLASMOSIS
  3. ZIDOVUDINE /LAMIVUDINE (LAMIVUDINE, ZIDOVUDINE) [Suspect]
     Indication: HIV INFECTION
  4. KALETRA [Suspect]
     Indication: HIV INFECTION
  5. LEUCOVORIN CALCIUM [Concomitant]

REACTIONS (1)
  - PANCYTOPENIA [None]
